FAERS Safety Report 13832164 (Version 1)
Quarter: 2017Q3

REPORT INFORMATION
  Report Type: Spontaneous
  Country: US (occurrence: US)
  Receive Date: 20170804
  Receipt Date: 20170804
  Transmission Date: 20171127
  Serious: No
  Sender: FDA-Public Use
  Company Number: US-ASTRAZENECA-2017SE79567

PATIENT
  Age: 86 Year
  Sex: Female
  Weight: 66.2 kg

DRUGS (1)
  1. RHINOCORT ALLERGY [Suspect]
     Active Substance: BUDESONIDE
     Indication: SINUS DISORDER
     Dosage: 1 SPRAY EACH SIDE ONCE
     Route: 045
     Dates: start: 20170728, end: 20170728

REACTIONS (5)
  - Fatigue [Recovered/Resolved]
  - Therapeutic response unexpected [Unknown]
  - Off label use [Recovered/Resolved]
  - Somnolence [Recovered/Resolved]
  - Product use in unapproved indication [Recovered/Resolved]

NARRATIVE: CASE EVENT DATE: 20170728
